FAERS Safety Report 5494718-X (Version None)
Quarter: 2007Q4

REPORT INFORMATION
  Report Type: 
  Country: None (occurrence: None)
  Receive Date: 20071024
  Receipt Date: 20071017
  Transmission Date: 20080405
  Serious: Yes (Hospitalization, Other)
  Sender: FDA-Public Use
  Company Number: US-ROCHE-467565

PATIENT
  Age: 17 Year
  Sex: Male
  Weight: 72.6 kg

DRUGS (3)
  1. ACCUTANE [Suspect]
     Indication: ACNE
     Route: 048
     Dates: start: 19980203, end: 19980401
  2. ACCUTANE [Suspect]
     Route: 048
     Dates: start: 19960909, end: 19961201
  3. ACCUTANE [Suspect]
     Route: 048
     Dates: start: 19970101, end: 19970301

REACTIONS (7)
  - ANAEMIA [None]
  - COLITIS [None]
  - CROHN'S DISEASE [None]
  - DEPRESSION [None]
  - INFLAMMATORY BOWEL DISEASE [None]
  - IRRITABLE BOWEL SYNDROME [None]
  - SCHIZOPHRENIA [None]
